FAERS Safety Report 7421762-5 (Version None)
Quarter: 2011Q2

REPORT INFORMATION
  Report Type: 
  Country: None (occurrence: None)
  Receive Date: 20110418
  Receipt Date: 20110405
  Transmission Date: 20111010
  Serious: Yes (Hospitalization)
  Sender: FDA-Public Use
  Company Number: US-CELGENEUS-163-21880-11022939

PATIENT
  Sex: Male
  Weight: 76.272 kg

DRUGS (2)
  1. RITUXIMAB [Suspect]
     Indication: NON-HODGKIN'S LYMPHOMA
     Dosage: 800 MILLIGRAM
     Route: 051
     Dates: start: 20110125, end: 20110125
  2. REVLIMID [Suspect]
     Indication: NON-HODGKIN'S LYMPHOMA
     Dosage: 20 MILLIGRAM
     Route: 048
     Dates: start: 20110111, end: 20110129

REACTIONS (2)
  - CRYOGLOBULINAEMIA [None]
  - HYPERVISCOSITY SYNDROME [None]
